FAERS Safety Report 22337668 (Version 1)
Quarter: 2023Q2

REPORT INFORMATION
  Report Type: Spontaneous
  Country: NL (occurrence: NL)
  Receive Date: 20230518
  Receipt Date: 20230518
  Transmission Date: 20230721
  Serious: Yes (Hospitalization, Other)
  Sender: FDA-Public Use
  Company Number: None

PATIENT

DRUGS (4)
  1. LAMICTAL [Suspect]
     Active Substance: LAMOTRIGINE
     Indication: Epilepsy
     Dosage: 100 MG, QD (1X PER DAY 1 PIECE)
     Route: 065
     Dates: start: 20230104, end: 20230202
  2. CETOMACROGOL + GLYCERINE + VASELINE CREAM [Concomitant]
     Indication: Product used for unknown indication
     Dosage: CREAM
     Route: 065
  3. KETOCONAZOLE + TRIAMCINOLONE ACETONIDE [Concomitant]
     Indication: Product used for unknown indication
     Dosage: CREAM, 20/1 MG/G (MILLIGRAM PER GRAM)
     Route: 065
  4. CLOBETASOL [Concomitant]
     Active Substance: CLOBETASOL
     Indication: Product used for unknown indication
     Dosage: CREAM, 0.5 MG/G (MILLIGRAMS PER GRAM)
     Route: 065

REACTIONS (1)
  - Drug reaction with eosinophilia and systemic symptoms [Recovered/Resolved]
